FAERS Safety Report 6733083-4 (Version None)
Quarter: 2010Q2

REPORT INFORMATION
  Report Type: 
  Country: None (occurrence: None)
  Receive Date: 20100518
  Receipt Date: 20100311
  Transmission Date: 20101027
  Serious: Yes (Hospitalization)
  Sender: FDA-Public Use
  Company Number: 2009SA003748

PATIENT
  Age: 71 Year
  Sex: Male

DRUGS (13)
  1. BYETTA [Suspect]
     Indication: TYPE 2 DIABETES MELLITUS
     Dosage: TWICE A DAY, SUBCUTANEOUS
     Route: 058
     Dates: start: 20090316, end: 20090413
  2. BYETTA [Suspect]
     Indication: TYPE 2 DIABETES MELLITUS
     Dosage: TWICE A DAY, SUBCUTANEOUS
     Route: 058
     Dates: start: 20090414, end: 20091108
  3. BYETTA [Suspect]
     Indication: TYPE 2 DIABETES MELLITUS
     Dosage: TWICE A DAY, SUBCUTANEOUS
     Route: 058
     Dates: start: 20091109, end: 20091109
  4. BYETTA [Suspect]
     Indication: TYPE 2 DIABETES MELLITUS
     Dosage: TWICE A DAY, SUBCUTANEOUS
     Route: 058
     Dates: start: 20091109, end: 20091109
  5. BYETTA [Suspect]
     Indication: TYPE 2 DIABETES MELLITUS
     Dosage: TWICE A DAY, SUBCUTANEOUS
     Route: 058
     Dates: start: 20091110
  6. OPTICLICK / UNKNOWN / UNKNOWN [Suspect]
     Indication: TYPE 2 DIABETES MELLITUS
     Dates: start: 20090316
  7. FUROSEMIDE [Concomitant]
  8. BETAMETHASONE [Concomitant]
  9. CANODERM (UREA) [Concomitant]
  10. ELOCON [Concomitant]
  11. COZAAR [Concomitant]
  12. METFORMIN HCL [Concomitant]
  13. LOSARTAN (LOSARTAN POTASSIUM) [Concomitant]

REACTIONS (1)
  - CHEST PAIN [None]
